FAERS Safety Report 7470488-0 (Version None)
Quarter: 2011Q2

REPORT INFORMATION
  Report Type: 
  Country: None (occurrence: None)
  Receive Date: 20110510
  Receipt Date: 20110506
  Transmission Date: 20111010
  Serious: Yes (Death)
  Sender: FDA-Public Use
  Company Number: ZM-ABBOTT-11P-189-0723981-00

PATIENT
  Sex: Male

DRUGS (1)
  1. LOPINAVIR/RITONAVIR [Suspect]
     Indication: HIV INFECTION
     Route: 048
     Dates: start: 20110401, end: 20110429

REACTIONS (1)
  - DIARRHOEA [None]
